FAERS Safety Report 8854280 (Version 1)
Quarter: 2012Q4

REPORT INFORMATION
  Report Type: 
  Country: US (occurrence: US)
  Receive Date: 20121023
  Receipt Date: 20121023
  Transmission Date: 20130627
  Serious: Yes (Other)
  Sender: FDA-Public Use
  Company Number: US-ASTRAZENECA-2012SE79328

PATIENT
  Age: 69 Year
  Sex: Female
  Weight: 60.8 kg

DRUGS (9)
  1. METOPROLOL SUCCINATE [Suspect]
     Route: 048
  2. TRIAMCINOLONE [Concomitant]
     Indication: RASH
  3. ZYRTEC [Concomitant]
     Indication: PRURITUS
  4. ATARAX [Concomitant]
  5. ACTONEL [Concomitant]
     Dates: end: 20121001
  6. LOSARTAN [Concomitant]
     Dates: end: 20121001
  7. CALCIUM [Concomitant]
     Dates: end: 20121001
  8. DAILY VITAMIN [Concomitant]
     Dates: end: 20121001
  9. PROGESTERONE [Concomitant]
     Dates: end: 20121001

REACTIONS (1)
  - Toxic skin eruption [Unknown]
